FAERS Safety Report 13601729 (Version 1)
Quarter: 2017Q2

REPORT INFORMATION
  Report Type: Spontaneous
  Country: US (occurrence: US)
  Receive Date: 20170601
  Receipt Date: 20170601
  Transmission Date: 20170830
  Serious: No
  Sender: FDA-Public Use
  Company Number: US-BAUSCH-BL-2016-019368

PATIENT
  Age: 54 Year
  Sex: Female
  Weight: 47.67 kg

DRUGS (7)
  1. VITAMIN D [Concomitant]
     Active Substance: CHOLECALCIFEROL
     Indication: VITAMIN SUPPLEMENTATION
     Route: 048
  2. ELIDEL [Suspect]
     Active Substance: PIMECROLIMUS
     Indication: EYE PRURITUS
     Route: 061
     Dates: start: 20160809, end: 20160810
  3. ELIDEL [Suspect]
     Active Substance: PIMECROLIMUS
     Indication: DRY EYE
  4. CALCIUM [Concomitant]
     Active Substance: CALCIUM
     Indication: PRODUCT USED FOR UNKNOWN INDICATION
     Route: 048
  5. ELIDEL [Suspect]
     Active Substance: PIMECROLIMUS
     Indication: LACRIMATION INCREASED
  6. ELIDEL [Suspect]
     Active Substance: PIMECROLIMUS
     Indication: EYE SWELLING
  7. AQUAPHOR [Concomitant]
     Active Substance: PETROLATUM
     Indication: EYE LUBRICATION THERAPY
     Route: 061

REACTIONS (5)
  - Lacrimation increased [Recovering/Resolving]
  - Ocular hyperaemia [Recovering/Resolving]
  - Off label use [Unknown]
  - Eye pain [Not Recovered/Not Resolved]
  - Eye irritation [Recovering/Resolving]

NARRATIVE: CASE EVENT DATE: 20160809
